FAERS Safety Report 8554655-0 (Version None)
Quarter: 2012Q3

REPORT INFORMATION
  Report Type: 
  Country: None (occurrence: None)
  Receive Date: 20120731
  Receipt Date: 20120723
  Transmission Date: 20120928
  Serious: Yes (Other)
  Sender: FDA-Public Use
  Company Number: DE-JNJFOC-20120711471

PATIENT
  Age: 38 Year
  Sex: Female

DRUGS (6)
  1. REMICADE [Suspect]
     Route: 042
     Dates: start: 20111101
  2. REMICADE [Suspect]
     Route: 042
     Dates: start: 20100101
  3. REMICADE [Suspect]
     Indication: CROHN'S DISEASE
     Route: 042
     Dates: start: 20110601
  4. MUTAFLOR [Concomitant]
     Route: 065
  5. CALCIUM AND VITAMIN D [Concomitant]
     Route: 065
  6. CORTISONE ACETATE [Concomitant]
     Route: 065

REACTIONS (2)
  - OSTEOPOROSIS [None]
  - CROHN'S DISEASE [None]
